FAERS Safety Report 4314880-1 (Version None)
Quarter: 2004Q1

REPORT INFORMATION
  Report Type: 
  Country: None (occurrence: None)
  Receive Date: 20040308
  Receipt Date: 20040223
  Transmission Date: 20041129
  Serious: Yes (Hospitalization)
  Sender: FDA-Public Use
  Company Number: 2004AP01192

PATIENT
  Age: 64 Year
  Sex: Female

DRUGS (17)
  1. IRESSA [Suspect]
     Indication: ADENOCARCINOMA
     Dosage: 250 MG DAILY PO
     Route: 048
     Dates: start: 20031030, end: 20031121
  2. IRESSA [Suspect]
     Indication: NON-SMALL CELL LUNG CANCER
     Dosage: 250 MG DAILY PO
     Route: 048
     Dates: start: 20031030, end: 20031121
  3. IRESSA [Suspect]
     Indication: ADENOCARCINOMA
     Dosage: 250 MG DAILY PO
     Route: 048
     Dates: start: 20031210, end: 20031226
  4. IRESSA [Suspect]
     Indication: NON-SMALL CELL LUNG CANCER
     Dosage: 250 MG DAILY PO
     Route: 048
     Dates: start: 20031210, end: 20031226
  5. PREDONINE [Concomitant]
  6. POLARAMINE [Concomitant]
  7. GASTER [Concomitant]
  8. POTACOL R [Concomitant]
  9. SOLITA T [Concomitant]
  10. PRIMPERAN INJ [Concomitant]
  11. PHYSIOSOL [Concomitant]
  12. BISOLVON [Concomitant]
  13. UNICALIQ L [Concomitant]
  14. NEOLAMIN [Concomitant]
  15. CISPLATIN [Concomitant]
  16. VINORELBINE TARTRATE [Concomitant]
  17. CARBOPLATIN [Concomitant]

REACTIONS (6)
  - BLOOD BILIRUBIN INCREASED [None]
  - CONDITION AGGRAVATED [None]
  - DYSPHAGIA [None]
  - GAMMA-GLUTAMYLTRANSFERASE INCREASED [None]
  - NAUSEA [None]
  - VOMITING [None]
